FAERS Safety Report 19604541 (Version 1)
Quarter: 2021Q3

REPORT INFORMATION
  Report Type: Spontaneous
  Country: AU (occurrence: AU)
  Receive Date: 20210723
  Receipt Date: 20210723
  Transmission Date: 20211014
  Serious: Yes (Other)
  Sender: FDA-Public Use
  Company Number: AU-ALLERGAN-2126510US

PATIENT
  Sex: Male

DRUGS (2)
  1. GANFORT 0.3/5 [Suspect]
     Active Substance: BIMATOPROST\TIMOLOL
     Indication: INTRAOCULAR PRESSURE INCREASED
     Dosage: 2 GTT, QHS
     Route: 047
     Dates: start: 201411
  2. GANFORT 0.3/5 [Suspect]
     Active Substance: BIMATOPROST\TIMOLOL
     Indication: OPEN ANGLE GLAUCOMA

REACTIONS (1)
  - Deafness [Unknown]

NARRATIVE: CASE EVENT DATE: 2017
